FAERS Safety Report 10724025 (Version 1)
Quarter: 2015Q1

REPORT INFORMATION
  Report Type: Spontaneous
  Country: US (occurrence: None)
  Receive Date: 20150116
  Receipt Date: 20150116
  Transmission Date: 20150721
  Serious: No
  Sender: FDA-Public Use
  Company Number: None

PATIENT
  Age: 31 Year
  Sex: Female
  Weight: 69.85 kg

DRUGS (2)
  1. MIRENA [Suspect]
     Active Substance: LEVONORGESTREL
     Indication: CONTRACEPTION
     Dosage: 52 MG ?1 DEVICE?INTRAUTERINE DEVICE-DAILY?IMPLANTED
     Dates: start: 20141020, end: 20141229
  2. IBUPROFEN. [Concomitant]
     Active Substance: IBUPROFEN

REACTIONS (7)
  - Dyspnoea [None]
  - Mood swings [None]
  - Depression [None]
  - Heart rate abnormal [None]
  - Ovarian cyst ruptured [None]
  - Anxiety [None]
  - Palpitations [None]
